FAERS Safety Report 18776456 (Version 1)
Quarter: 2021Q1

REPORT INFORMATION
  Report Type: Spontaneous
  Country: CZ (occurrence: CZ)
  Receive Date: 20210122
  Receipt Date: 20210122
  Transmission Date: 20210419
  Serious: Yes (Other)
  Sender: FDA-Public Use
  Company Number: CZ-JNJFOC-20210123483

PATIENT
  Age: 63 Year
  Sex: Male

DRUGS (3)
  1. TREMFYA [Suspect]
     Active Substance: GUSELKUMAB
  2. TREMFYA [Suspect]
     Active Substance: GUSELKUMAB
  3. TREMFYA [Suspect]
     Active Substance: GUSELKUMAB
     Indication: PSORIASIS
     Dosage: 100 MG IN WEEK 0 AND 4,
     Route: 058
     Dates: start: 20190815

REACTIONS (5)
  - Prostate cancer [Unknown]
  - Nail dystrophy [Unknown]
  - Mycobacterium tuberculosis complex test positive [Recovered/Resolved]
  - Furuncle [Unknown]
  - Osteosclerosis [Unknown]

NARRATIVE: CASE EVENT DATE: 201911
